FAERS Safety Report 19652455 (Version 1)
Quarter: 2021Q3

REPORT INFORMATION
  Report Type: Spontaneous
  Country: US (occurrence: US)
  Receive Date: 20210803
  Receipt Date: 20210803
  Transmission Date: 20211014
  Serious: No
  Sender: FDA-Public Use
  Company Number: US-SA-2021SA252198

PATIENT
  Age: 49 Year
  Sex: Female

DRUGS (10)
  1. NOVOLIN 70/30 [Concomitant]
     Active Substance: INSULIN HUMAN
     Indication: TYPE 2 DIABETES MELLITUS
  2. HYDROCHLOROTHIAZIDE. [Concomitant]
     Active Substance: HYDROCHLOROTHIAZIDE
  3. LOSARTAN POTASSIUM. [Concomitant]
     Active Substance: LOSARTAN POTASSIUM
  4. METFORMIN HCL [Concomitant]
     Active Substance: METFORMIN HYDROCHLORIDE
     Indication: RHEUMATOID ARTHRITIS
  5. PREDNISONE. [Concomitant]
     Active Substance: PREDNISONE
  6. GABAPENTIN. [Concomitant]
     Active Substance: GABAPENTIN
  7. KEVZARA [Suspect]
     Active Substance: SARILUMAB
     Indication: RHEUMATOID ARTHRITIS
     Dosage: 200 MG
     Route: 058
  8. ROSUVASTATIN CALCIUM. [Concomitant]
     Active Substance: ROSUVASTATIN CALCIUM
  9. ENBREL [Concomitant]
     Active Substance: ETANERCEPT
  10. HUMIRA [Concomitant]
     Active Substance: ADALIMUMAB

REACTIONS (1)
  - Therapeutic product effect delayed [Unknown]
